FAERS Safety Report 21459006 (Version 1)
Quarter: 2022Q4

REPORT INFORMATION
  Report Type: Spontaneous
  Country: CA (occurrence: CA)
  Receive Date: 20221014
  Receipt Date: 20221014
  Transmission Date: 20230113
  Serious: Yes (Life-Threatening, Hospitalization, Other)
  Sender: FDA-Public Use
  Company Number: CA-TAKEDA-2022TUS073734

PATIENT
  Age: 27 Year
  Sex: Male
  Weight: 86 kg

DRUGS (1)
  1. VYVANSE [Suspect]
     Active Substance: LISDEXAMFETAMINE DIMESYLATE
     Indication: Attention deficit hyperactivity disorder
     Dosage: 70 MILLIGRAM, BID
     Route: 048

REACTIONS (9)
  - Abnormal behaviour [Unknown]
  - Decreased appetite [Unknown]
  - Delusion [Unknown]
  - Drug monitoring procedure not performed [Unknown]
  - Dry mouth [Unknown]
  - Hallucination, auditory [Unknown]
  - Insomnia [Unknown]
  - Psychotic disorder [Unknown]
  - Weight decreased [Unknown]
